FAERS Safety Report 7430116-7 (Version None)
Quarter: 2011Q2

REPORT INFORMATION
  Report Type: 
  Country: None (occurrence: None)
  Receive Date: 20110421
  Receipt Date: 20100503
  Transmission Date: 20111010
  Serious: Yes (Hospitalization)
  Sender: FDA-Public Use
  Company Number: US-ASTRAZENECA-2010SE14220

PATIENT
  Sex: Male

DRUGS (3)
  1. TOPROL-XL [Suspect]
     Route: 048
  2. TOPROL-XL [Suspect]
     Indication: ARRHYTHMIA
     Route: 048
     Dates: start: 20000101
  3. PLAVIX [Concomitant]
     Route: 048
     Dates: start: 20000101

REACTIONS (3)
  - HEART RATE INCREASED [None]
  - DYSPNOEA [None]
  - PALPITATIONS [None]
